FAERS Safety Report 21008769 (Version 1)
Quarter: 2022Q2

REPORT INFORMATION
  Report Type: Spontaneous
  Country: US (occurrence: None)
  Receive Date: 20220624
  Receipt Date: 20220624
  Transmission Date: 20220720
  Serious: No
  Sender: FDA-Public Use
  Company Number: None

PATIENT
  Age: 57 Year
  Sex: Female
  Weight: 90 kg

DRUGS (12)
  1. PAXLOVID [Suspect]
     Active Substance: NIRMATRELVIR\RITONAVIR
     Indication: COVID-19
     Dosage: FREQUENCY : TWICE A DAY;?
     Route: 048
     Dates: start: 20220616, end: 20220620
  2. C-P [Concomitant]
  3. BUPROPION [Concomitant]
     Active Substance: BUPROPION
  4. SERTRALINE [Concomitant]
     Active Substance: SERTRALINE HYDROCHLORIDE
  5. NALTREXONE [Concomitant]
     Active Substance: NALTREXONE
  6. PROGESTERONE [Concomitant]
     Active Substance: PROGESTERONE
  7. bi-est cream [Concomitant]
  8. VITAMIN D [Concomitant]
     Active Substance: VITAMIN D NOS
  9. Vitamin  B12 [Concomitant]
  10. multivitamin/mineral [Concomitant]
  11. MAGNESIUM [Concomitant]
     Active Substance: MAGNESIUM
  12. ZINC [Concomitant]
     Active Substance: ZINC

REACTIONS (2)
  - Painful respiration [None]
  - Abdominal pain [None]

NARRATIVE: CASE EVENT DATE: 20220619
